FAERS Safety Report 15650682 (Version 2)
Quarter: 2018Q4

REPORT INFORMATION
  Report Type: Spontaneous
  Country: US (occurrence: US)
  Receive Date: 20181123
  Receipt Date: 20181215
  Transmission Date: 20190205
  Serious: Yes (Other)
  Sender: FDA-Public Use
  Company Number: US-009507513-1811USA006095

PATIENT
  Sex: Female
  Weight: 54.42 kg

DRUGS (7)
  1. LENVIMA [Concomitant]
     Active Substance: LENVATINIB
     Dosage: 4 MILIGRAM, QD
  2. DRONABINOL. [Concomitant]
     Active Substance: DRONABINOL
     Dosage: UNK
  3. MORPHINE SULFATE. [Concomitant]
     Active Substance: MORPHINE SULFATE
     Dosage: UNK
  4. INTRON A [Suspect]
     Active Substance: INTERFERON ALFA-2B
     Indication: HEPATIC CANCER
     Dosage: INJECT 0.9 ML (5.4 MU) UNDER THE SKIN, ON DAYS 1,3,5, AND 7 DURING 5-FU INFUSION.
     Route: 059
     Dates: start: 20180430
  5. LEVOFLOXACIN. [Concomitant]
     Active Substance: LEVOFLOXACIN
     Dosage: UNK
  6. FLUOXETINE HYDROCHLORIDE. [Concomitant]
     Active Substance: FLUOXETINE HYDROCHLORIDE
     Dosage: UNK
  7. ESTARYLLA [Concomitant]
     Active Substance: ETHINYL ESTRADIOL\NORGESTIMATE
     Dosage: UNK

REACTIONS (15)
  - Constipation [Unknown]
  - Pyrexia [Unknown]
  - Fatigue [Unknown]
  - Pain [Unknown]
  - Diarrhoea [Unknown]
  - Blood pressure increased [Not Recovered/Not Resolved]
  - Nausea [Unknown]
  - Vomiting [Unknown]
  - Product dose omission [Unknown]
  - Joint stiffness [Unknown]
  - Dizziness [Unknown]
  - Pneumothorax [Unknown]
  - Stomatitis [Unknown]
  - Dry skin [Unknown]
  - Musculoskeletal stiffness [Unknown]

NARRATIVE: CASE EVENT DATE: 2018
